FAERS Safety Report 20910089 (Version 1)
Quarter: 2022Q2

REPORT INFORMATION
  Report Type: Spontaneous
  Country: US (occurrence: None)
  Receive Date: 20220602
  Receipt Date: 20220602
  Transmission Date: 20220720
  Serious: No
  Sender: FDA-Public Use
  Company Number: None

PATIENT
  Sex: Male

DRUGS (1)
  1. DESCOVY [Suspect]
     Active Substance: EMTRICITABINE\TENOFOVIR ALAFENAMIDE FUMARATE
     Indication: Prophylaxis against HIV infection
     Dosage: OTHER QUANTITY : 200/25MG;?FREQUENCY : DAILY;?
     Route: 048
     Dates: start: 202010

REACTIONS (2)
  - Hospitalisation [None]
  - Adverse drug reaction [None]
